FAERS Safety Report 21825412 (Version 2)
Quarter: 2023Q1

REPORT INFORMATION
  Report Type: Spontaneous
  Country: US (occurrence: US)
  Receive Date: 20230105
  Receipt Date: 20230106
  Transmission Date: 20230418
  Serious: Yes (Hospitalization)
  Sender: FDA-Public Use
  Company Number: US-PARI RESPIRATORY EQUIPMENT, INC.-2022PAR00071

PATIENT
  Sex: Female
  Weight: 15.102 kg

DRUGS (2)
  1. KITABIS PAK [Suspect]
     Active Substance: TOBRAMYCIN
     Dosage: 5 ML (300 MG) VIA NEBULIZER, 2X/DAY FOR 28 DAYS ONLY. NO CYCLING
  2. PULMOZYME [Concomitant]
     Active Substance: DORNASE ALFA

REACTIONS (4)
  - Infective pulmonary exacerbation of cystic fibrosis [Unknown]
  - Cough [Unknown]
  - Unevaluable event [Unknown]
  - Off label use [Unknown]

NARRATIVE: CASE EVENT DATE: 20220101
